FAERS Safety Report 26100011 (Version 1)
Quarter: 2025Q4

REPORT INFORMATION
  Report Type: Spontaneous
  Country: EU (occurrence: EU)
  Receive Date: 20251128
  Receipt Date: 20251128
  Transmission Date: 20260117
  Serious: Yes (Life-Threatening, Hospitalization, Other)
  Sender: BRISTOL-MYERS SQUIBB COMPANY
  Company Number: None

PATIENT
  Age: 78 Year
  Sex: Male
  Weight: 82 kg

DRUGS (1)
  1. NIVOLUMAB [Suspect]
     Active Substance: NIVOLUMAB
     Indication: Gastric cancer
     Dosage: 4.5MG/KG=360MG A 3 WEEKS
     Dates: start: 20240813, end: 20251119

REACTIONS (3)
  - Cholestatic liver injury [Recovering/Resolving]
  - Jaundice cholestatic [Recovering/Resolving]
  - Cholangitis [Recovering/Resolving]
